FAERS Safety Report 5812061-3 (Version None)
Quarter: 2008Q3

REPORT INFORMATION
  Report Type: 
  Country: None (occurrence: None)
  Receive Date: 20080716
  Receipt Date: 20080714
  Transmission Date: 20090109
  Serious: Yes (Hospitalization)
  Sender: FDA-Public Use
  Company Number: US-BOEHRINGER INGELHEIM GMBH, GERMANY-2008-BP-10961BP

PATIENT
  Sex: Female

DRUGS (9)
  1. CATAPRES-TTS-1 [Suspect]
     Indication: HYPERTENSION
     Route: 062
     Dates: start: 20080201
  2. CARBAMAZEPINE [Concomitant]
     Indication: CONVULSION
  3. ARTHROTEC [Concomitant]
     Indication: ARTHRITIS
  4. COREG [Concomitant]
  5. ASPIRIN [Concomitant]
  6. ALPRAZOLAM [Concomitant]
  7. LISINOPRIL [Concomitant]
     Indication: HYPERTENSION
  8. FISH OIL [Concomitant]
     Indication: BLOOD CHOLESTEROL INCREASED
  9. ALPRAZOLAM [Concomitant]
     Indication: INSOMNIA
     Route: 048

REACTIONS (1)
  - VERTIGO [None]
